FAERS Safety Report 14044423 (Version 1)
Quarter: 2017Q4

REPORT INFORMATION
  Report Type: Spontaneous
  Country: NL (occurrence: NL)
  Receive Date: 20171004
  Receipt Date: 20171004
  Transmission Date: 20180321
  Serious: Yes (Death)
  Sender: FDA-Public Use
  Company Number: NL-PFIZER INC-2017422714

PATIENT
  Age: 68 Year
  Sex: Male

DRUGS (18)
  1. HYDROCORTISON /00028601/ [Concomitant]
     Active Substance: HYDROCORTISONE
  2. SOMAVERT [Suspect]
     Active Substance: PEGVISOMANT
     Dosage: 30 MG, 1X/WEEKLY
     Route: 058
     Dates: start: 20160506
  3. SOMAVERT [Suspect]
     Active Substance: PEGVISOMANT
     Indication: ACROMEGALY
     Dosage: 40 MG, 1X/WEEKLY
     Route: 058
     Dates: start: 20130118, end: 20160505
  4. FENPROCOUMON [Concomitant]
     Active Substance: PHENPROCOUMON
     Dosage: 3 MG, ACCORDING TO SCHEDULE
     Route: 048
  5. EPLERENON [Concomitant]
     Active Substance: EPLERENONE
     Dosage: 25 MG, 1X/DAY
     Route: 048
  6. OCTREOTIDE. [Concomitant]
     Active Substance: OCTREOTIDE
     Dosage: 20 MG, ACCORDING TO SCHEDULE
  7. TESTOSTERON /00103101/ [Concomitant]
     Active Substance: TESTOSTERONE
     Dosage: 10 MG/G, 1X/DAY
  8. TESTOSTERON /00103101/ [Concomitant]
     Active Substance: TESTOSTERONE
     Dosage: 250 MG/ML, 1X/DAY
  9. LEVOTHYROXINE. [Concomitant]
     Active Substance: LEVOTHYROXINE
     Dosage: 100 UG, 1X/DAY
     Route: 048
  10. SOMAVERT [Suspect]
     Active Substance: PEGVISOMANT
     Dosage: UNK
     Dates: start: 20050817
  11. ACENOCOUMAROL [Concomitant]
     Active Substance: ACENOCOUMAROL
     Dosage: 1 MG, ACCORDING TO SCHEDULE
     Route: 048
  12. COLCHICINE. [Concomitant]
     Active Substance: COLCHICINE
     Dosage: 0.5 MG, 1X/DAY
     Route: 048
  13. FUROSEMIDE. [Concomitant]
     Active Substance: FUROSEMIDE
     Dosage: 60 MG, 1X/DAY
     Route: 048
  14. ALLOPURINOL. [Concomitant]
     Active Substance: ALLOPURINOL
     Dosage: 300 MG, 1X/DAY
     Route: 048
  15. IRBESARTAN AND HYDROCHLOROTHIAZIDE [Concomitant]
     Active Substance: HYDROCHLOROTHIAZIDE\IRBESARTAN
     Dosage: 1 DF, 1X/DAY (300/25MG)
     Route: 048
  16. SIMVASTATINE [Concomitant]
     Active Substance: SIMVASTATIN
     Dosage: 40 MG, 1X/DAY
     Route: 048
  17. TETANUS TOXOID ADSORBED (VACCINE) [Concomitant]
     Active Substance: CLOSTRIDIUM TETANI TOXOID ANTIGEN (FORMALDEHYDE INACTIVATED)
     Dosage: 80 UNK, UNK
  18. METOPROLOL. [Concomitant]
     Active Substance: METOPROLOL
     Dosage: 200 MG, 1X/DAY
     Route: 048

REACTIONS (4)
  - Cardiac failure [Fatal]
  - Arrhythmia [Fatal]
  - Product use issue [Recovered/Resolved]
  - Ear neoplasm [Fatal]

NARRATIVE: CASE EVENT DATE: 20130118
